FAERS Safety Report 12395685 (Version 2)
Quarter: 2016Q2

REPORT INFORMATION
  Report Type: Spontaneous
  Country: US (occurrence: US)
  Receive Date: 20160523
  Receipt Date: 20160524
  Transmission Date: 20160815
  Serious: Yes (Death, Other)
  Sender: FDA-Public Use
  Company Number: PHHY2016US068282

PATIENT
  Age: 73 Year
  Sex: Female

DRUGS (5)
  1. MYCOPHENOLATE MOFETIL. [Suspect]
     Active Substance: MYCOPHENOLATE MOFETIL
     Indication: IMMUNOSUPPRESSION
     Dosage: 500 MG, QD
     Route: 065
  2. PREDNISOLONE. [Suspect]
     Active Substance: PREDNISOLONE
     Dosage: 5 MG/DL, UNK
     Route: 065
  3. CICLOSPORIN [Suspect]
     Active Substance: CYCLOSPORINE
     Route: 065
  4. CICLOSPORIN [Suspect]
     Active Substance: CYCLOSPORINE
     Indication: IMMUNOSUPPRESSION
     Route: 065
  5. PREDNISOLONE. [Suspect]
     Active Substance: PREDNISOLONE
     Indication: IMMUNOSUPPRESSION
     Dosage: 7.5 MG, QD
     Route: 065

REACTIONS (11)
  - Sepsis [Fatal]
  - Multiple organ dysfunction syndrome [Fatal]
  - Pseudomonas infection [Fatal]
  - Pneumonia [Fatal]
  - Neutropenia [Unknown]
  - Clostridium difficile colitis [Fatal]
  - Cytomegalovirus infection [Fatal]
  - Thrombocytopenia [Unknown]
  - Transplant failure [Fatal]
  - Herpes zoster [Fatal]
  - Pneumonia aspiration [Fatal]
